FAERS Safety Report 8261988-4 (Version None)
Quarter: 2012Q2

REPORT INFORMATION
  Report Type: 
  Country: None (occurrence: None)
  Receive Date: 20120405
  Receipt Date: 20120403
  Transmission Date: 20120825
  Serious: Yes (Hospitalization, Other)
  Sender: FDA-Public Use
  Company Number: TR-PFIZER INC-2012083680

PATIENT
  Age: 54 Year
  Sex: Male
  Weight: 77 kg

DRUGS (1)
  1. VARENICLINE TARTRATE [Suspect]
     Indication: SMOKING CESSATION THERAPY
     Dosage: 1 TABLET, UNK
     Route: 048
     Dates: start: 20111015, end: 20111202

REACTIONS (10)
  - DIARRHOEA [None]
  - LOSS OF CONSCIOUSNESS [None]
  - RENAL FAILURE ACUTE [None]
  - PERSONALITY CHANGE [None]
  - SOLILOQUY [None]
  - APATHY [None]
  - DAYDREAMING [None]
  - THROMBOTIC THROMBOCYTOPENIC PURPURA [None]
  - GRAND MAL CONVULSION [None]
  - CONFUSIONAL STATE [None]
